FAERS Safety Report 25832215 (Version 1)
Quarter: 2025Q3

REPORT INFORMATION
  Report Type: Spontaneous
  Country: US (occurrence: None)
  Receive Date: 20250919
  Receipt Date: 20250919
  Transmission Date: 20251020
  Serious: Yes (Hospitalization)
  Sender: FDA-CTU
  Company Number: None

PATIENT
  Sex: Female

DRUGS (1)
  1. CUVITRU [Suspect]
     Active Substance: HUMAN IMMUNOGLOBULIN G
     Indication: Product used for unknown indication
     Dosage: OTHER FREQUENCY : WEEKLY; ?STRENGTH: 10GM/0.5ML
     Route: 058
     Dates: start: 20230303

REACTIONS (2)
  - Bacterial infection [None]
  - Post procedural complication [None]
